FAERS Safety Report 18304921 (Version 1)
Quarter: 2020Q3

REPORT INFORMATION
  Report Type: Spontaneous
  Country: US (occurrence: US)
  Receive Date: 20200923
  Receipt Date: 20200923
  Transmission Date: 20201103
  Serious: No
  Sender: FDA-Public Use
  Company Number: US-PFIZER INC-2020366508

PATIENT
  Age: 77 Year
  Sex: Female
  Weight: 61.22 kg

DRUGS (15)
  1. PROBIOTIC ACIDOPHILUS [LACTOBACILLUS ACIDOPHILUS] [Concomitant]
     Dosage: UNK
  2. ACYCLOVIR [ACICLOVIR] [Concomitant]
     Active Substance: ACYCLOVIR
     Dosage: 200 MG
     Route: 048
  3. TRAMADOL HCL [Concomitant]
     Active Substance: TRAMADOL HYDROCHLORIDE
     Dosage: 50 MG
     Route: 048
  4. ASPIRIN (E.C.) [Concomitant]
     Active Substance: ASPIRIN
     Dosage: UNK (100G, UNK)
  5. CALTRATE WITH VITAMIN D [Concomitant]
     Active Substance: CALCIUM CARBONATE\CHOLECALCIFEROL
     Dosage: UNK (600 + D)
  6. REVLIMID [Suspect]
     Active Substance: LENALIDOMIDE
     Dosage: UNK UNK, DAILY (20?10MG, 1 IN 1 D (DAY))
     Route: 048
     Dates: start: 201903
  7. PROTONIX [Concomitant]
     Active Substance: PANTOPRAZOLE SODIUM
     Dosage: 40 MG
     Route: 048
  8. REVLIMID [Suspect]
     Active Substance: LENALIDOMIDE
     Indication: PLASMA CELL MYELOMA
     Dosage: 25 MG, DAILY
     Route: 048
     Dates: start: 201811
  9. CALCIUM [Concomitant]
     Active Substance: CALCIUM
     Dosage: UNK (500 (1250) PO (ORALLY))
     Route: 048
  10. REVLIMID [Suspect]
     Active Substance: LENALIDOMIDE
     Dosage: 15 MG (14 IN 14 D (DAY))
     Route: 048
     Dates: start: 202002
  11. BACTRIM [Concomitant]
     Active Substance: SULFAMETHOXAZOLE\TRIMETHOPRIM
     Dosage: UNK (400MG? 80MG)
  12. NEURONTIN [Suspect]
     Active Substance: GABAPENTIN
     Dosage: 100 MG
     Route: 048
  13. REVLIMID [Suspect]
     Active Substance: LENALIDOMIDE
     Dosage: 10 MG  (14 IN 14 D (DAY))
     Route: 048
     Dates: start: 202004
  14. CRESTOR [Concomitant]
     Active Substance: ROSUVASTATIN CALCIUM
     Dosage: 40 MG
     Route: 048
  15. VANCOMYCIN HCL [Concomitant]
     Active Substance: VANCOMYCIN HYDROCHLORIDE
     Dosage: 125 MG
     Route: 048

REACTIONS (5)
  - Liver function test decreased [Unknown]
  - Dizziness [Unknown]
  - Jaundice [Unknown]
  - Herpes zoster [Unknown]
  - Diarrhoea [Unknown]
